FAERS Safety Report 9369209 (Version 1)
Quarter: 2013Q2

REPORT INFORMATION
  Report Type: Spontaneous
  Country: US (occurrence: None)
  Receive Date: 20130625
  Receipt Date: 20130625
  Transmission Date: 20140414
  Serious: Yes (Death, Other)
  Sender: FDA-Public Use
  Company Number: None

PATIENT
  Age: 77 Year
  Sex: Male
  Weight: 81.19 kg

DRUGS (1)
  1. MEGESTROL 40MG PAR PHARM [Suspect]
     Indication: DECREASED APPETITE
     Dates: start: 20121102, end: 20121114

REACTIONS (5)
  - Dyspnoea [None]
  - Penile haemorrhage [None]
  - Dysarthria [None]
  - Pneumonia [None]
  - Organ failure [None]
